FAERS Safety Report 15246709 (Version 1)
Quarter: 2018Q3

REPORT INFORMATION
  Report Type: Spontaneous
  Country: FR (occurrence: FR)
  Receive Date: 20180806
  Receipt Date: 20180806
  Transmission Date: 20181010
  Serious: Yes (Hospitalization)
  Sender: FDA-Public Use
  Company Number: FR-ELI_LILLY_AND_COMPANY-FR201808001453

PATIENT
  Age: 77 Year
  Sex: Female

DRUGS (2)
  1. DESMOPRESSINE A [Concomitant]
     Indication: URINARY INCONTINENCE
     Dosage: 120 UG, DAILY
     Route: 048
     Dates: start: 2015
  2. DULOXETINE HYDROCHLORIDE. [Suspect]
     Active Substance: DULOXETINE HYDROCHLORIDE
     Indication: DEPRESSION
     Dosage: 30 MG, DAILY
     Route: 048
     Dates: start: 20180202, end: 20180423

REACTIONS (2)
  - Fall [Recovering/Resolving]
  - Orthostatic hypotension [Recovering/Resolving]

NARRATIVE: CASE EVENT DATE: 20180325
